FAERS Safety Report 9210195 (Version 8)
Quarter: 2014Q2

REPORT INFORMATION
  Report Type: Spontaneous
  Country: US (occurrence: US)
  Receive Date: 20130404
  Receipt Date: 20140513
  Transmission Date: 20141212
  Serious: Yes (Disabling, Other)
  Sender: FDA-Public Use
  Company Number: US-UCBSA-082009

PATIENT
  Age: 49 Year
  Sex: Male

DRUGS (7)
  1. CIMZIA [Suspect]
     Indication: CROHN^S DISEASE
     Dosage: ??/SEP/2015, ??/DEC/2015, ??-FEB-2016
     Dates: start: 20090413, end: 2014
  2. PROPRANOLOL [Concomitant]
     Indication: ARTERIAL OCCLUSIVE DISEASE
     Dates: start: 20130318
  3. NITROGLYCERINE [Concomitant]
     Indication: CHEST PAIN
  4. HYDROMORPHONE [Concomitant]
     Indication: PAIN
     Dosage: 2MG
  5. ENTOCORT [Concomitant]
     Dosage: DOSE: 6MG
  6. ENTOCORT [Concomitant]
     Dosage: DOSE: 3MG
     Dates: start: 20130701, end: 201307
  7. ENTOCORT [Concomitant]
     Dosage: INCREASED TO 6 MG
     Dates: start: 20130731

REACTIONS (16)
  - Coronary artery occlusion [Not Recovered/Not Resolved]
  - Disability [Not Recovered/Not Resolved]
  - Nephrolithiasis [Unknown]
  - Diarrhoea [Unknown]
  - Abdominal pain [Recovering/Resolving]
  - Gastrointestinal disorder [Unknown]
  - Stress [Unknown]
  - Upper respiratory tract infection [Recovered/Resolved]
  - Vomiting [Recovered/Resolved]
  - Decreased appetite [Recovered/Resolved]
  - Oliguria [Unknown]
  - Chromaturia [Unknown]
  - Fatigue [Unknown]
  - Weight decreased [Not Recovered/Not Resolved]
  - Injection site haemorrhage [Recovered/Resolved]
  - Frequent bowel movements [Recovered/Resolved]
